FAERS Safety Report 12953467 (Version 1)
Quarter: 2016Q4

REPORT INFORMATION
  Report Type: Spontaneous
  Country: FR (occurrence: FR)
  Receive Date: 20161117
  Receipt Date: 20161117
  Transmission Date: 20170207
  Serious: Yes (Other)
  Sender: FDA-Public Use
  Company Number: FR-ASTRAZENECA-2016SF19444

PATIENT
  Age: 28111 Day
  Sex: Female

DRUGS (7)
  1. INEXIUM [Suspect]
     Active Substance: ESOMEPRAZOLE
     Route: 048
  2. SERESTA [Suspect]
     Active Substance: OXAZEPAM
     Indication: DEPRESSION
     Route: 048
  3. BISOCE [Suspect]
     Active Substance: BISOPROLOL
     Indication: HYPERTENSION
     Route: 048
  4. MAG2TABLET [Suspect]
     Active Substance: MAGNESIUM PIDOLATE
     Route: 048
  5. CYMBALTA [Suspect]
     Active Substance: DULOXETINE HYDROCHLORIDE
     Indication: DEPRESSION
     Route: 048
  6. FORLAX [Suspect]
     Active Substance: POLYETHYLENE GLYCOL 4000
     Indication: CONSTIPATION
     Route: 048
  7. COVERSYL [Suspect]
     Active Substance: PERINDOPRIL
     Indication: HYPERTENSION
     Route: 048

REACTIONS (7)
  - Pulmonary congestion [None]
  - Interstitial lung disease [Unknown]
  - Inflammation [Unknown]
  - Chest X-ray abnormal [Not Recovered/Not Resolved]
  - Musculoskeletal pain [Unknown]
  - Rales [Unknown]
  - Weight decreased [Unknown]

NARRATIVE: CASE EVENT DATE: 20161018
